FAERS Safety Report 21530535 (Version 1)
Quarter: 2022Q4

REPORT INFORMATION
  Report Type: Spontaneous
  Country: US (occurrence: None)
  Receive Date: 20221028
  Receipt Date: 20221028
  Transmission Date: 20230113
  Serious: Yes (Hospitalization)
  Sender: FDA-Public Use
  Company Number: None

PATIENT

DRUGS (3)
  1. LOSARTAN [Suspect]
     Active Substance: LOSARTAN
  2. POTASSIUM [Suspect]
     Active Substance: POTASSIUM
  3. SPIRONOLACTONE [Suspect]
     Active Substance: SPIRONOLACTONE

REACTIONS (5)
  - Hyperkalaemia [None]
  - Therapy cessation [None]
  - Muscular weakness [None]
  - Gait inability [None]
  - Blood glucose decreased [None]

NARRATIVE: CASE EVENT DATE: 20210620
